FAERS Safety Report 25283487 (Version 1)
Quarter: 2025Q2

REPORT INFORMATION
  Report Type: Spontaneous
  Country: US (occurrence: None)
  Receive Date: 20250507
  Receipt Date: 20250507
  Transmission Date: 20250716
  Serious: No
  Sender: FDA-CTU
  Company Number: None

PATIENT
  Age: 71 Year
  Sex: Female
  Weight: 69.75 kg

DRUGS (7)
  1. TRIAMCINOLONE ACETONIDE [Suspect]
     Active Substance: TRIAMCINOLONE ACETONIDE
     Indication: Osteoarthritis
     Dates: start: 20250421
  2. ROSUVASTATIN [Concomitant]
     Active Substance: ROSUVASTATIN
  3. LEVOTHYROXINE [Concomitant]
     Active Substance: LEVOTHYROXINE
  4. DABIGATRAN [Concomitant]
     Active Substance: DABIGATRAN
  5. ESTRADIOL [Concomitant]
     Active Substance: ESTRADIOL
  6. DILTIAZEM [Concomitant]
     Active Substance: DILTIAZEM
  7. PESSARY [Concomitant]

REACTIONS (1)
  - Uterine haemorrhage [None]
